FAERS Safety Report 4636274-1 (Version None)
Quarter: 2005Q2

REPORT INFORMATION
  Report Type: 
  Country: None (occurrence: None)
  Receive Date: 20050415
  Receipt Date: 20040511
  Transmission Date: 20051028
  Serious: Yes (Other)
  Sender: FDA-Public Use
  Company Number: US-BRISTOL-MYERS SQUIBB COMPANY-12583829

PATIENT
  Age: 51 Year
  Sex: Female
  Weight: 49 kg

DRUGS (5)
  1. PARAPLATIN [Suspect]
     Indication: OVARIAN CANCER
     Route: 042
     Dates: start: 20031103, end: 20031103
  2. TAXOL [Concomitant]
     Indication: OVARIAN CANCER
     Route: 042
     Dates: start: 20031103, end: 20031103
  3. DECADRON [Concomitant]
     Indication: PREMEDICATION
     Route: 042
     Dates: start: 20031103, end: 20031103
  4. PEPCID [Concomitant]
     Indication: PREMEDICATION
     Route: 042
     Dates: start: 20031103, end: 20031103
  5. BENADRYL [Concomitant]
     Indication: PREMEDICATION
     Route: 042
     Dates: start: 20031103, end: 20031103

REACTIONS (1)
  - HYPERSENSITIVITY [None]
